FAERS Safety Report 9857196 (Version 2)
Quarter: 2014Q1

REPORT INFORMATION
  Report Type: Report from Study
  Country: AR (occurrence: AR)
  Receive Date: 20140130
  Receipt Date: 20140130
  Transmission Date: 20141002
  Serious: Yes (Hospitalization, Other)
  Sender: FDA-Public Use
  Company Number: PHHY2013AR143157

PATIENT
  Sex: Male

DRUGS (1)
  1. ONBREZ [Suspect]
     Indication: CHRONIC OBSTRUCTIVE PULMONARY DISEASE
     Dosage: 300 UG, UNK
     Route: 048
     Dates: start: 2012

REACTIONS (5)
  - Aortic stenosis [Recovering/Resolving]
  - Chest pain [Recovering/Resolving]
  - Postoperative wound infection [Unknown]
  - Fatigue [Unknown]
  - Incorrect route of drug administration [Unknown]
